FAERS Safety Report 6505086-6 (Version None)
Quarter: 2009Q4

REPORT INFORMATION
  Report Type: 
  Country: None (occurrence: None)
  Receive Date: 20091216
  Receipt Date: 20091209
  Transmission Date: 20100525
  Serious: Yes (Hospitalization)
  Sender: FDA-Public Use
  Company Number: ADR14962009 (MHRA ADR NO:.ADR 20538

PATIENT
  Age: 65 Year
  Sex: Female

DRUGS (4)
  1. ALBUTEROL [Suspect]
     Indication: DYSPNOEA
     Dosage: 5MG
     Dates: start: 20090713, end: 20090713
  2. ALBUTEROL [Suspect]
     Indication: DYSPNOEA
     Dosage: 5MG
     Dates: start: 20090720
  3. ANASTROZOLE [Concomitant]
  4. OMEPRAZOLE [Concomitant]

REACTIONS (3)
  - CHEST DISCOMFORT [None]
  - EAR PAIN [None]
  - PALPITATIONS [None]
